FAERS Safety Report 11239617 (Version 1)
Quarter: 2015Q3

REPORT INFORMATION
  Report Type: Spontaneous
  Country: US (occurrence: None)
  Receive Date: 20150701
  Receipt Date: 20150701
  Transmission Date: 20151125
  Serious: Yes (Other)
  Sender: FDA-Public Use
  Company Number: None

PATIENT
  Age: 69 Year
  Sex: Female
  Weight: 81.65 kg

DRUGS (17)
  1. SLEEPING PILL [Concomitant]
  2. ADVIL [Concomitant]
     Active Substance: IBUPROFEN
  3. METAMUCIL [Concomitant]
     Active Substance: PLANTAGO SEED
  4. LANTUS [Concomitant]
     Active Substance: INSULIN GLARGINE
  5. ARMOUR [Concomitant]
  6. SODIUM NAPROXIN [Concomitant]
  7. TRILIPEX [Concomitant]
  8. VITAMIN D [Concomitant]
     Active Substance: CHOLECALCIFEROL
  9. BIOTIN [Concomitant]
     Active Substance: BIOTIN
  10. TYLENOL [Concomitant]
     Active Substance: ACETAMINOPHEN
  11. MAGNESIUM [Concomitant]
     Active Substance: MAGNESIUM
  12. VESICARE [Suspect]
     Active Substance: SOLIFENACIN SUCCINATE
     Indication: INCONTINENCE
     Route: 048
     Dates: start: 20141130, end: 20150630
  13. APIDRA [Concomitant]
     Active Substance: INSULIN GLULISINE
  14. VITAMIN C [Concomitant]
     Active Substance: ASCORBIC ACID
  15. PROBIOTICS [Concomitant]
     Active Substance: PROBIOTICS NOS
  16. LOSARTAN. [Concomitant]
     Active Substance: LOSARTAN
  17. PRISTIQ EXTENDED RELEASE [Concomitant]
     Active Substance: DESVENLAFAXINE SUCCINATE

REACTIONS (2)
  - Alopecia [None]
  - Speech disorder [None]

NARRATIVE: CASE EVENT DATE: 20150413
